FAERS Safety Report 18992102 (Version 1)
Quarter: 2021Q1

REPORT INFORMATION
  Report Type: Spontaneous
  Country: US (occurrence: US)
  Receive Date: 20210310
  Receipt Date: 20210310
  Transmission Date: 20210420
  Serious: Yes (Hospitalization)
  Sender: FDA-Public Use
  Company Number: None

PATIENT
  Age: 31 Year
  Sex: Male
  Weight: 85 kg

DRUGS (1)
  1. OXYCODONE (OXYCODONE HCL 15MG TAB) [Suspect]
     Active Substance: OXYCODONE HYDROCHLORIDE
     Indication: PAIN
     Route: 048
     Dates: start: 20180417, end: 20210120

REACTIONS (7)
  - Sepsis [None]
  - Overdose [None]
  - Tachycardia [None]
  - Leukocytosis [None]
  - Hypotension [None]
  - Hypoxia [None]
  - Urinary tract infection [None]

NARRATIVE: CASE EVENT DATE: 20210305
